FAERS Safety Report 10584881 (Version 1)
Quarter: 2014Q4

REPORT INFORMATION
  Report Type: Spontaneous
  Country: CN (occurrence: CN)
  Receive Date: 20141114
  Receipt Date: 20141114
  Transmission Date: 20150529
  Serious: Yes (Other)
  Sender: FDA-Public Use
  Company Number: CN-JNJFOC-20141021203

PATIENT

DRUGS (2)
  1. DURAGESIC [Suspect]
     Active Substance: FENTANYL
     Indication: CANCER PAIN
     Dosage: 25 UG/HR AND 50 UG/HR
     Route: 062
  2. MORPHINE [Suspect]
     Active Substance: MORPHINE
     Indication: CANCER PAIN
     Route: 065

REACTIONS (26)
  - Heart rate increased [Unknown]
  - Dyspnoea [Unknown]
  - Decreased appetite [Unknown]
  - Lethargy [Unknown]
  - Nausea [Unknown]
  - Vomiting [Unknown]
  - Blood pressure decreased [Unknown]
  - Dry mouth [Unknown]
  - Palpitations [Unknown]
  - Headache [Unknown]
  - Abdominal discomfort [Unknown]
  - Irritability [Unknown]
  - Sputum retention [Unknown]
  - Delirium [Unknown]
  - Respiratory rate increased [Unknown]
  - Anxiety [Unknown]
  - Chest discomfort [Unknown]
  - Respiratory depression [Unknown]
  - Pruritus [Unknown]
  - Hyperhidrosis [Unknown]
  - Hallucination [Unknown]
  - Hypersensitivity [Unknown]
  - Dizziness [Unknown]
  - Constipation [Unknown]
  - Dysuria [Unknown]
  - Flushing [Unknown]
